FAERS Safety Report 6975549-8 (Version None)
Quarter: 2010Q3

REPORT INFORMATION
  Report Type: 
  Country: None (occurrence: None)
  Receive Date: 20100910
  Receipt Date: 20100902
  Transmission Date: 20110219
  Serious: No
  Sender: FDA-Public Use
  Company Number: US-BIOGENIDEC-2010BI030571

PATIENT
  Sex: Female

DRUGS (2)
  1. AVONEX [Suspect]
     Indication: MULTIPLE SCLEROSIS
     Route: 030
     Dates: start: 20001115, end: 20020215
  2. AVONEX [Suspect]
     Route: 030
     Dates: start: 20060203

REACTIONS (3)
  - ARTHRALGIA [None]
  - BACK PAIN [None]
  - NUCLEAR MAGNETIC RESONANCE IMAGING ABNORMAL [None]
